FAERS Safety Report 21421350 (Version 1)
Quarter: 2022Q4

REPORT INFORMATION
  Report Type: Spontaneous
  Country: US (occurrence: US)
  Receive Date: 20221007
  Receipt Date: 20221007
  Transmission Date: 20230112
  Serious: Yes (Hospitalization, Other)
  Sender: FDA-Public Use
  Company Number: US-BRISTOL-MYERS SQUIBB COMPANY-2022-113794

PATIENT
  Age: 44 Year
  Sex: Male
  Weight: 123.4 kg

DRUGS (2)
  1. NULOJIX [Suspect]
     Active Substance: BELATACEPT
     Indication: Immunosuppression
     Dosage: DOSE : 550MG;     FREQ : EVERY 28 DAYS
     Route: 042
  2. NULOJIX [Suspect]
     Active Substance: BELATACEPT
     Indication: Heart transplant

REACTIONS (2)
  - Cardiac failure [Unknown]
  - Off label use [Unknown]

NARRATIVE: CASE EVENT DATE: 20220926
